FAERS Safety Report 6456171-9 (Version None)
Quarter: 2009Q4

REPORT INFORMATION
  Report Type: 
  Country: None (occurrence: None)
  Receive Date: 20091125
  Receipt Date: 20091116
  Transmission Date: 20100525
  Serious: Yes (Other)
  Sender: FDA-Public Use
  Company Number: JP-PFIZER INC-2009299779

PATIENT
  Age: 67 Year
  Sex: Male

DRUGS (2)
  1. ZITHROMAC SR [Suspect]
     Indication: NASOPHARYNGITIS
     Dosage: 2 G, SINGLE
     Route: 048
     Dates: start: 20091115, end: 20091115
  2. PL GRAN. [Concomitant]
     Dosage: UNK
     Route: 048
     Dates: start: 20091115

REACTIONS (1)
  - LOSS OF CONSCIOUSNESS [None]
